FAERS Safety Report 9689481 (Version 2)
Quarter: 2013Q4

REPORT INFORMATION
  Report Type: Spontaneous
  Country: CA (occurrence: CA)
  Receive Date: 20131114
  Receipt Date: 20131114
  Transmission Date: 20140711
  Serious: Yes (Hospitalization, Other)
  Sender: FDA-Public Use
  Company Number: CA-AMGEN-CANSP2013005095

PATIENT
  Age: 72 Year
  Sex: Female

DRUGS (3)
  1. ENBREL [Suspect]
     Indication: PSORIASIS
     Dosage: UNK
     Route: 065
     Dates: start: 20100611
  2. ARTHROTEC [Concomitant]
     Dosage: UNK
  3. TECTA [Concomitant]
     Dosage: UNK

REACTIONS (7)
  - Pulmonary mass [Unknown]
  - Lung cyst [Unknown]
  - Influenza [Recovered/Resolved]
  - Loss of consciousness [Unknown]
  - Dizziness [Unknown]
  - Hip fracture [Unknown]
  - Chest X-ray abnormal [Unknown]
